FAERS Safety Report 18391879 (Version 1)
Quarter: 2020Q4

REPORT INFORMATION
  Report Type: Spontaneous
  Country: US (occurrence: US)
  Receive Date: 20201016
  Receipt Date: 20201016
  Transmission Date: 20210114
  Serious: Yes (Hospitalization)
  Sender: FDA-Public Use
  Company Number: US-FRESENIUS KABI-FK202010746

PATIENT
  Age: 66 Year
  Sex: Female

DRUGS (5)
  1. FLUOROURACIL (MANUFACTURER UNKNOWN) [Suspect]
     Active Substance: FLUOROURACIL
     Indication: PANCREATIC CARCINOMA METASTATIC
     Dosage: STILL ONGOING?CONTINUOUS INFUSION OVER 46HRS EVERY 14 DAYS
     Route: 042
     Dates: start: 20200728
  2. IRINOTECAN [Suspect]
     Active Substance: IRINOTECAN
     Dosage: REDUCED TO 50 MG/M2 AS OF C3DL TX ON 08/AUG/2020. POSSIBLY RELATED
     Route: 042
     Dates: start: 20200808
  3. IRINOTECAN [Suspect]
     Active Substance: IRINOTECAN
     Indication: PANCREATIC CARCINOMA METASTATIC
     Dosage: LIPOSOMAL IRINOTECAN: Q 14 DAYS ?STILL ONGOING
     Route: 042
     Dates: start: 20200728
  4. PARICALCITOL. [Suspect]
     Active Substance: PARICALCITOL
     Indication: PANCREATIC CARCINOMA METASTATIC
     Dosage: 7 MCG/KG, Q WEEKLY?STILL ONGOING
     Route: 042
     Dates: start: 20200728
  5. CALCIUM FOLINATE [Suspect]
     Active Substance: LEUCOVORIN CALCIUM
     Indication: PANCREATIC CARCINOMA METASTATIC
     Dosage: STILL ONGOING?FREQUENCY OF Q 14 DAYS
     Route: 042
     Dates: start: 20200728

REACTIONS (6)
  - Diarrhoea [Unknown]
  - Fatigue [Recovering/Resolving]
  - Dehydration [Recovering/Resolving]
  - Dizziness [Recovering/Resolving]
  - Decreased appetite [Unknown]
  - Nausea [Recovering/Resolving]
